FAERS Safety Report 6681407-9 (Version None)
Quarter: 2010Q2

REPORT INFORMATION
  Report Type: 
  Country: None (occurrence: None)
  Receive Date: 20100414
  Receipt Date: 20100412
  Transmission Date: 20101027
  Serious: Yes (Other)
  Sender: FDA-Public Use
  Company Number: B0646658A

PATIENT
  Age: 48 Year
  Sex: Male

DRUGS (3)
  1. AUGMENTIN '125' [Suspect]
     Indication: SINUSITIS
     Dosage: 2UNIT PER DAY
     Route: 048
     Dates: start: 20090826
  2. TAVANIC [Suspect]
     Indication: SINUSITIS
     Dosage: 1UNIT PER DAY
     Route: 048
     Dates: start: 20090828, end: 20090903
  3. SOLUPRED [Suspect]
     Indication: SINUSITIS
     Dosage: 60MG PER DAY
     Route: 048
     Dates: start: 20090828, end: 20090901

REACTIONS (2)
  - BURSITIS [None]
  - TENDONITIS [None]
